FAERS Safety Report 5019556-3 (Version None)
Quarter: 2006Q2

REPORT INFORMATION
  Report Type: 
  Country: None (occurrence: None)
  Receive Date: 20060601
  Receipt Date: 20060523
  Transmission Date: 20061013
  Serious: Yes (Other)
  Sender: FDA-Public Use
  Company Number: T200600571

PATIENT
  Age: 13 Year
  Sex: Male
  Weight: 45.4 kg

DRUGS (2)
  1. OPTIRAY 320 [Suspect]
     Indication: COMPUTERISED TOMOGRAM HEAD
     Dosage: 105 ML, SINGLE, INTRAVENOUS
     Route: 042
     Dates: start: 20060517, end: 20060517
  2. BACLOFEN [Concomitant]

REACTIONS (8)
  - CHEST PAIN [None]
  - COUGH [None]
  - DYSPNOEA [None]
  - FLUSHING [None]
  - HEART RATE INCREASED [None]
  - RESPIRATORY RATE INCREASED [None]
  - THROAT TIGHTNESS [None]
  - WHEEZING [None]
